FAERS Safety Report 7598053-5 (Version None)
Quarter: 2011Q3

REPORT INFORMATION
  Report Type: 
  Country: None (occurrence: None)
  Receive Date: 20110708
  Receipt Date: 20110624
  Transmission Date: 20111222
  Serious: Yes (Other)
  Sender: FDA-Public Use
  Company Number: JP-UCBSA-036453

PATIENT
  Sex: Female

DRUGS (10)
  1. LAFUTIDINE [Concomitant]
     Dosage: DAILY DOSE: 10MG
     Dates: start: 20110319
  2. FERRIC PYROPHOSPHATE [Concomitant]
     Dosage: DAILY DOSE:15ML; SOLUBLE
     Dates: start: 20090319
  3. FERRIC OXIDE, SACCHARATED [Concomitant]
     Dosage: DAILY DOSE: AS NEEDED (ABOUT ONCE TIME PER WEEK)
     Dates: start: 20090416
  4. FUROSEMIDE [Concomitant]
     Dosage: DAILY DOSE:20 MG
     Dates: start: 20100819
  5. CERTOLIZUMAB PEGOL [Suspect]
     Indication: RHEUMATOID ARTHRITIS
     Route: 058
     Dates: start: 20090820
  6. LOXOPROFEN SODIUM HYDRATE [Concomitant]
     Dosage: DAILY DOSE: 180MG
     Dates: start: 20100709
  7. SODIUM GUALENATE HYDRTATE_L-GLUTAMINE [Concomitant]
     Dosage: DAILY DOSE: 1MG
     Dates: start: 20100209
  8. PREDNISOLONE [Concomitant]
     Dosage: DAILY DOSE: 6MG
     Dates: start: 20110217
  9. KETOPROFEN [Concomitant]
     Dosage: DAILY DOSE: ADEQUATE DOSE AS NEEDED
  10. TACROLIMUS [Concomitant]
     Dosage: DAILY DOSE:2 MG
     Dates: start: 20100819

REACTIONS (1)
  - BREAST CANCER [None]
